FAERS Safety Report 20553185 (Version 2)
Quarter: 2022Q1

REPORT INFORMATION
  Report Type: Report from Study
  Country: US (occurrence: US)
  Receive Date: 20220304
  Receipt Date: 20220315
  Transmission Date: 20220423
  Serious: Yes (Death, Hospitalization, Other)
  Sender: FDA-Public Use
  Company Number: US-EXELIXIS-CABO-22048279

PATIENT
  Age: 19 Year
  Sex: Female
  Weight: 53.4 kg

DRUGS (4)
  1. CABOMETYX [Suspect]
     Active Substance: CABOZANTINIB S-MALATE
     Indication: Nephroblastoma
     Dosage: 40 MG, QD
     Route: 048
     Dates: start: 2013, end: 20211211
  2. NEULASTA [Concomitant]
     Active Substance: PEGFILGRASTIM
  3. MORPHINE [Concomitant]
     Active Substance: MORPHINE
  4. SERTRALINE [Concomitant]
     Active Substance: SERTRALINE HYDROCHLORIDE

REACTIONS (15)
  - Acute respiratory failure [Unknown]
  - Contusion [Unknown]
  - Anaemia [Recovering/Resolving]
  - Thrombocytopenia [Unknown]
  - Malignant neoplasm progression [Fatal]
  - Metastases to lung [Unknown]
  - Radiation pneumonitis [Unknown]
  - Heart rate increased [Recovered/Resolved]
  - Fatigue [Unknown]
  - Vomiting [Unknown]
  - Nausea [Unknown]
  - Alanine aminotransferase increased [Unknown]
  - Aspartate aminotransferase increased [Unknown]
  - Blood glucose increased [Unknown]
  - Off label use [Unknown]

NARRATIVE: CASE EVENT DATE: 20211207
